FAERS Safety Report 17760409 (Version 1)
Quarter: 2020Q2

REPORT INFORMATION
  Report Type: Spontaneous
  Country: US (occurrence: US)
  Receive Date: 20200507
  Receipt Date: 20200507
  Transmission Date: 20200714
  Serious: Yes (Hospitalization)
  Sender: FDA-Public Use
  Company Number: None

PATIENT
  Age: 45 Year
  Sex: Male

DRUGS (20)
  1. TORSEMIDE. [Concomitant]
     Active Substance: TORSEMIDE
  2. VITAMIN C [Concomitant]
     Active Substance: ASCORBIC ACID
  3. XOPENEX HFA [Concomitant]
     Active Substance: LEVALBUTEROL TARTRATE
  4. AMBRISENTAN [Concomitant]
     Active Substance: AMBRISENTAN
  5. CALCIUM CITRATE [Concomitant]
     Active Substance: CALCIUM CITRATE
  6. REMERON [Concomitant]
     Active Substance: MIRTAZAPINE
  7. K-TAB [Concomitant]
     Active Substance: POTASSIUM CHLORIDE
  8. VELETRI [Concomitant]
     Active Substance: EPOPROSTENOL
  9. APIXABAN [Concomitant]
     Active Substance: APIXABAN
  10. BENZONATATE. [Concomitant]
     Active Substance: BENZONATATE
  11. RIOCIGUAT. [Concomitant]
     Active Substance: RIOCIGUAT
  12. SPIRONOLACTONE. [Concomitant]
     Active Substance: SPIRONOLACTONE
  13. PANTOPRAZOLE [Concomitant]
     Active Substance: PANTOPRAZOLE
  14. ADEMPAS [Suspect]
     Active Substance: RIOCIGUAT
     Indication: PULMONARY ARTERIAL HYPERTENSION
     Route: 048
     Dates: start: 20191230
  15. BETAMETHASONE DIPROPIONATE. [Concomitant]
     Active Substance: BETAMETHASONE DIPROPIONATE
  16. MVI [Concomitant]
     Active Substance: VITAMINS
  17. FERROUS GLUCONATE [Concomitant]
     Active Substance: FERROUS GLUCONATE
  18. VITAMIN B COMPLEX [Suspect]
     Active Substance: CYANOCOBALAMIN\DEXPANTHENOL\NIACINAMIDE\PYRIDOXINE HYDROCHLORIDE\RIBOFLAVIN 5^-PHOSPHATE SODIUM\THIAMINE HYDROCHLORIDE\VITAMIN B COMPLEX
  19. BUSPIRONE [Concomitant]
     Active Substance: BUSPIRONE HYDROCHLORIDE
  20. EPIPEN [Concomitant]
     Active Substance: EPINEPHRINE

REACTIONS (2)
  - Pulmonary hypertension [None]
  - Right ventricular failure [None]

NARRATIVE: CASE EVENT DATE: 20200306
